FAERS Safety Report 11208280 (Version 1)
Quarter: 2015Q2

REPORT INFORMATION
  Report Type: Spontaneous
  Country: US (occurrence: US)
  Receive Date: 20150622
  Receipt Date: 20150622
  Transmission Date: 20150821
  Serious: Yes (Death, Other)
  Sender: FDA-Public Use
  Company Number: US-ABBVIE-15P-163-1413566-00

PATIENT

DRUGS (2)
  1. PROPOFOL. [Interacting]
     Active Substance: PROPOFOL
     Indication: PRODUCT USED FOR UNKNOWN INDICATION
     Route: 065
  2. VALPROIC ACID. [Suspect]
     Active Substance: VALPROIC ACID
     Indication: PRODUCT USED FOR UNKNOWN INDICATION
     Route: 065

REACTIONS (11)
  - Hyperthermia [Unknown]
  - Renal failure [Unknown]
  - Hypertriglyceridaemia [Unknown]
  - Metabolic acidosis [Unknown]
  - Drug interaction [Unknown]
  - Rhabdomyolysis [Unknown]
  - Hypotension [Unknown]
  - Hypoxia [Unknown]
  - Propofol infusion syndrome [Fatal]
  - Cardiac failure [Unknown]
  - Transaminases increased [Unknown]
